FAERS Safety Report 19199719 (Version 6)
Quarter: 2022Q4

REPORT INFORMATION
  Report Type: Report from Study
  Country: US (occurrence: US)
  Receive Date: 20210430
  Receipt Date: 20221107
  Transmission Date: 20230113
  Serious: Yes (Other)
  Sender: FDA-Public Use
  Company Number: US-TAKEDA-US201932875

PATIENT
  Sex: Female

DRUGS (4)
  1. HUMAN IMMUNOGLOBULIN G [Suspect]
     Active Substance: HUMAN IMMUNOGLOBULIN G
     Indication: Primary immunodeficiency syndrome
     Dosage: 10 GRAM, 1/WEEK
     Route: 042
  2. HUMAN IMMUNOGLOBULIN G [Suspect]
     Active Substance: HUMAN IMMUNOGLOBULIN G
     Dosage: 10 GRAM, 1/WEEK
     Route: 058
  3. COVID-19 VACCINE NOS [Suspect]
     Active Substance: COVID-19 VACCINE NOS
     Indication: COVID-19 immunisation
     Dosage: UNK
     Route: 065
  4. PREDNISONE [Suspect]
     Active Substance: PREDNISONE
     Indication: Back pain
     Dosage: UNK
     Route: 065

REACTIONS (20)
  - Diabetes mellitus [Unknown]
  - Infusion site haemorrhage [Unknown]
  - Pulmonary pain [Unknown]
  - Depression [Unknown]
  - Obsessive-compulsive disorder [Unknown]
  - Condition aggravated [Recovered/Resolved]
  - Pain [Unknown]
  - Influenza [Unknown]
  - Illness [Unknown]
  - Weight decreased [Unknown]
  - Feeling abnormal [Unknown]
  - Multiple allergies [Unknown]
  - Influenza like illness [Unknown]
  - Ear pain [Recovered/Resolved]
  - Sinusitis [Unknown]
  - Fatigue [Unknown]
  - Skin irritation [Unknown]
  - Rash [Unknown]
  - Infusion site extravasation [Recovered/Resolved]
  - Device infusion issue [Unknown]
